FAERS Safety Report 4508994-0 (Version None)
Quarter: 2004Q4

REPORT INFORMATION
  Report Type: 
  Country: None (occurrence: None)
  Receive Date: 20041122
  Receipt Date: 20041122
  Transmission Date: 20050328
  Serious: Yes (Disabling)
  Sender: FDA-Public Use
  Company Number: None

PATIENT
  Age: 44 Year
  Sex: Male
  Weight: 58.9676 kg

DRUGS (1)
  1. PAXIL CR [Suspect]
     Indication: DEPRESSION
     Dosage: 1 TABLET PER DAY ORAL
     Route: 048
     Dates: start: 20030401, end: 20041120

REACTIONS (7)
  - ABNORMAL BEHAVIOUR [None]
  - ASOCIAL BEHAVIOUR [None]
  - CONDUCTION DISORDER [None]
  - DRUG DEPENDENCE [None]
  - MOOD ALTERED [None]
  - NERVOUS SYSTEM DISORDER [None]
  - SUICIDAL IDEATION [None]
